FAERS Safety Report 17113717 (Version 2)
Quarter: 2020Q1

REPORT INFORMATION
  Report Type: Spontaneous
  Country: US (occurrence: US)
  Receive Date: 20191205
  Receipt Date: 20200305
  Transmission Date: 20200409
  Serious: No
  Sender: FDA-Public Use
  Company Number: US-TEVA-2019-US-1148344

PATIENT
  Age: 83 Year
  Sex: Female

DRUGS (4)
  1. RALOXIFENE HYDROCHLORIDE. [Suspect]
     Active Substance: RALOXIFENE HYDROCHLORIDE
     Indication: OSTEOPOROSIS POSTMENOPAUSAL
     Route: 065
     Dates: start: 2013
  2. RALOXIFENE HYDROCHLORIDE. [Suspect]
     Active Substance: RALOXIFENE HYDROCHLORIDE
     Route: 065
     Dates: start: 2009
  3. RALOXIFENE HYDROCHLORIDE. [Suspect]
     Active Substance: RALOXIFENE HYDROCHLORIDE
     Dates: start: 2013
  4. LEVOTHYROXINE. [Concomitant]
     Active Substance: LEVOTHYROXINE
     Route: 065

REACTIONS (3)
  - Pruritus [Not Recovered/Not Resolved]
  - Urticaria [Not Recovered/Not Resolved]
  - Rash pruritic [Not Recovered/Not Resolved]

NARRATIVE: CASE EVENT DATE: 201812
